FAERS Safety Report 24918057 (Version 1)
Quarter: 2025Q1

REPORT INFORMATION
  Report Type: Spontaneous
  Country: US (occurrence: US)
  Receive Date: 20250203
  Receipt Date: 20250203
  Transmission Date: 20250409
  Serious: No
  Sender: INCYTE
  Company Number: US-INCYTE CORPORATION-2025IN000525

PATIENT

DRUGS (2)
  1. PEMAZYRE [Suspect]
     Active Substance: PEMIGATINIB
     Indication: Malignant lymphoid neoplasm
     Route: 048
     Dates: start: 20240627
  2. PEMAZYRE [Suspect]
     Active Substance: PEMIGATINIB
     Indication: Haematopoietic neoplasm

REACTIONS (2)
  - Product availability issue [Unknown]
  - Off label use [Unknown]
